FAERS Safety Report 18035578 (Version 2)
Quarter: 2020Q3

REPORT INFORMATION
  Report Type: Spontaneous
  Country: US (occurrence: US)
  Receive Date: 20200717
  Receipt Date: 20200820
  Transmission Date: 20201103
  Serious: Yes (Hospitalization)
  Sender: FDA-Public Use
  Company Number: US-ROCHE-2640748

PATIENT
  Sex: Female

DRUGS (6)
  1. LOMOTIL [Concomitant]
     Active Substance: ATROPINE SULFATE\DIPHENOXYLATE HYDROCHLORIDE
     Indication: DIARRHOEA
  2. ROCEPHIN [Concomitant]
     Active Substance: CEFTRIAXONE SODIUM
  3. TUCATINIB [Suspect]
     Active Substance: TUCATINIB
     Indication: BREAST CANCER FEMALE
     Route: 065
  4. AMBIEN [Concomitant]
     Active Substance: ZOLPIDEM TARTRATE
  5. HERCEPTIN [Concomitant]
     Active Substance: TRASTUZUMAB
     Route: 065
  6. XELODA [Suspect]
     Active Substance: CAPECITABINE
     Indication: BREAST CANCER FEMALE
     Route: 065

REACTIONS (25)
  - Decubitus ulcer [Unknown]
  - Mouth ulceration [Unknown]
  - Respiration abnormal [Unknown]
  - Irritability [Unknown]
  - Ocular icterus [Unknown]
  - Confusional state [Recovered/Resolved]
  - Spinal column injury [Unknown]
  - Dry skin [Unknown]
  - Throat clearing [Unknown]
  - Hypersensitivity [Unknown]
  - Diarrhoea [Unknown]
  - Thrombosis [Unknown]
  - Asthenia [Unknown]
  - Dry mouth [Unknown]
  - Skin laceration [Unknown]
  - Neuropathy peripheral [Unknown]
  - Pharyngeal disorder [Unknown]
  - Insomnia [Unknown]
  - Anxiety [Unknown]
  - Transfusion [Unknown]
  - Urinary tract infection [Unknown]
  - Abdominal distension [Unknown]
  - Dehydration [Unknown]
  - Skin discolouration [Unknown]
  - Stomatitis [Unknown]
